FAERS Safety Report 6597798-3 (Version None)
Quarter: 2010Q1

REPORT INFORMATION
  Report Type: 
  Country: None (occurrence: None)
  Receive Date: 20100223
  Receipt Date: 20100216
  Transmission Date: 20100710
  Serious: Yes (Hospitalization)
  Sender: FDA-Public Use
  Company Number: US-AMGEN-QUU392886

PATIENT
  Age: 75 Year
  Sex: Male

DRUGS (4)
  1. NEUPOGEN [Suspect]
     Indication: MYELODYSPLASTIC SYNDROME
  2. REVLIMID [Concomitant]
  3. PRILOSEC [Concomitant]
  4. SPIRIVA [Concomitant]

REACTIONS (3)
  - NEUTROPENIA [None]
  - PNEUMONIA [None]
  - PYREXIA [None]
